FAERS Safety Report 9266153 (Version 1)
Quarter: 2013Q2

REPORT INFORMATION
  Report Type: Report from Study
  Country: BR (occurrence: BR)
  Receive Date: 20130502
  Receipt Date: 20130502
  Transmission Date: 20140414
  Serious: Yes (Other)
  Sender: FDA-Public Use
  Company Number: BR-ROCHE-1218748

PATIENT
  Sex: Female

DRUGS (8)
  1. XOLAIR [Suspect]
     Indication: ASTHMA
     Route: 058
     Dates: start: 20130313
  2. NIMESULIDE [Suspect]
     Indication: PRODUCT USED FOR UNKNOWN INDICATION
     Route: 065
  3. EUTIROX [Concomitant]
  4. FORADIL [Concomitant]
     Route: 065
  5. ESOMEPRAZOLE [Concomitant]
     Route: 065
  6. AEROLIN [Concomitant]
  7. SINGULAIR [Concomitant]
     Route: 065
  8. DOMPERIDONE [Concomitant]

REACTIONS (11)
  - Emphysema [Recovering/Resolving]
  - Gastrooesophageal reflux disease [Recovering/Resolving]
  - Diverticulum [Unknown]
  - Herpes zoster [Recovering/Resolving]
  - Rash [Recovering/Resolving]
  - Ear pain [Recovered/Resolved]
  - Headache [Recovered/Resolved]
  - Toothache [Recovered/Resolved]
  - Pain in jaw [Recovered/Resolved]
  - Gastrointestinal disorder [Unknown]
  - Fear [Unknown]
